FAERS Safety Report 5093879-4 (Version None)
Quarter: 2006Q3

REPORT INFORMATION
  Report Type: 
  Country: None (occurrence: None)
  Receive Date: 20060829
  Receipt Date: 20060829
  Transmission Date: 20061208
  Serious: Yes (Other)
  Sender: FDA-Public Use
  Company Number: None

PATIENT
  Sex: Female
  Weight: 49.4421 kg

DRUGS (1)
  1. ZENAPAX [Suspect]
     Indication: MULTIPLE SCLEROSIS
     Dosage: GIVEN AT THE MS CLINIC  I THINK SHE TOOK 4 MONTHS

REACTIONS (3)
  - ALOPECIA TOTALIS [None]
  - ALOPECIA UNIVERSALIS [None]
  - RASH PRURITIC [None]
